FAERS Safety Report 9731749 (Version 1)
Quarter: 2013Q4

REPORT INFORMATION
  Report Type: Spontaneous
  Country: US (occurrence: None)
  Receive Date: 20131204
  Receipt Date: 20131204
  Transmission Date: 20140711
  Serious: Yes (Life-Threatening, Hospitalization, Disabling, Other)
  Sender: FDA-Public Use
  Company Number: None

PATIENT
  Age: 45 Year
  Sex: Male
  Weight: 73.48 kg

DRUGS (5)
  1. ANDROGEL TESTOSTERONE GEL 1.62% ABBVIE [Suspect]
     Dosage: 4 PUMPS, 1X DAILY, SHOULDERS (SKIN)
     Dates: start: 201204, end: 201309
  2. ASPIRIN [Concomitant]
  3. SIMVASTATIN [Suspect]
  4. LISINOPRIL [Concomitant]
  5. VITAMINS [Concomitant]

REACTIONS (1)
  - Ischaemic stroke [None]
